FAERS Safety Report 6646429-2 (Version None)
Quarter: 2010Q1

REPORT INFORMATION
  Report Type: 
  Country: None (occurrence: None)
  Receive Date: 20100309
  Receipt Date: 20091222
  Transmission Date: 20100710
  Serious: Yes (Other)
  Sender: FDA-Public Use
  Company Number: 2009SP043108

PATIENT
  Age: 47 Year
  Sex: Male

DRUGS (7)
  1. SAPHRIS [Suspect]
     Indication: BIPOLAR DISORDER
     Dosage: 5 MG;
     Dates: start: 20091208
  2. TRAZODONE HCL [Suspect]
     Indication: DRUG USE FOR UNKNOWN INDICATION
     Dosage: ;HS;
     Route: 010
  3. LITHIUM [Concomitant]
  4. CYMBALTA [Concomitant]
  5. LEXAPRO [Concomitant]
  6. RITALIN [Concomitant]
  7. CYTOMEL [Concomitant]

REACTIONS (3)
  - INAPPROPRIATE SCHEDULE OF DRUG ADMINISTRATION [None]
  - NIGHTMARE [None]
  - SYNCOPE [None]
